FAERS Safety Report 20517522 (Version 1)
Quarter: 2022Q1

REPORT INFORMATION
  Report Type: Spontaneous
  Country: US (occurrence: None)
  Receive Date: 20220224
  Receipt Date: 20220224
  Transmission Date: 20220423
  Serious: Yes (Hospitalization)
  Sender: FDA-Public Use
  Company Number: None

PATIENT
  Age: 79 Year
  Sex: Male

DRUGS (1)
  1. WARFARIN SODIUM [Suspect]
     Active Substance: WARFARIN SODIUM
     Indication: Pulmonary embolism
     Dosage: 5 MG EVERY DAY PO
     Route: 048

REACTIONS (6)
  - Haematochezia [None]
  - Blood creatinine increased [None]
  - Blood lactic acid increased [None]
  - Haemorrhoids [None]
  - Angiodysplasia [None]
  - Gastric haemorrhage [None]

NARRATIVE: CASE EVENT DATE: 20211209
